FAERS Safety Report 13641563 (Version 5)
Quarter: 2018Q4

REPORT INFORMATION
  Report Type: Spontaneous
  Country: GB (occurrence: GB)
  Receive Date: 20170612
  Receipt Date: 20181011
  Transmission Date: 20190204
  Serious: Yes (Hospitalization, Other)
  Sender: FDA-Public Use
  Company Number: GB-MYLANLABS-2017M1034735

PATIENT
  Sex: Male

DRUGS (1)
  1. CLOZARIL [Suspect]
     Active Substance: CLOZAPINE
     Indication: SCHIZOPHRENIA
     Dosage: UNK
     Route: 048
     Dates: start: 19960307, end: 20170531

REACTIONS (11)
  - Left ventricular dysfunction [Recovered/Resolved]
  - Coma [Unknown]
  - Memory impairment [Unknown]
  - Cardiomyopathy [Recovering/Resolving]
  - Arrhythmia [Recovered/Resolved]
  - Myocardial infarction [Unknown]
  - Tooth disorder [Unknown]
  - Cardiac failure [Recovered/Resolved]
  - Tooth infection [Unknown]
  - Confusional state [Unknown]
  - Seizure [Unknown]

NARRATIVE: CASE EVENT DATE: 2017
